FAERS Safety Report 7484222-1 (Version None)
Quarter: 2011Q2

REPORT INFORMATION
  Report Type: 
  Country: None (occurrence: None)
  Receive Date: 20110517
  Receipt Date: 20110505
  Transmission Date: 20111010
  Serious: Yes (Other)
  Sender: FDA-Public Use
  Company Number: PHHY2010BR47983

PATIENT
  Sex: Male
  Weight: 80 kg

DRUGS (1)
  1. DIOVAN HCT [Suspect]
     Dosage: 160 MG VALS AND 12.5 MG HYDR, ONE TABLET IN THE MORNING
     Route: 048

REACTIONS (9)
  - BLADDER CYST [None]
  - ERECTILE DYSFUNCTION [None]
  - AGGRESSION [None]
  - ANXIETY [None]
  - SOMNOLENCE [None]
  - ABNORMAL BEHAVIOUR [None]
  - AGITATION [None]
  - BLOOD TESTOSTERONE FREE DECREASED [None]
  - BLOOD PRESSURE INCREASED [None]
